FAERS Safety Report 21219713 (Version 1)
Quarter: 2022Q3

REPORT INFORMATION
  Report Type: Other
  Country: GB (occurrence: GB)
  Receive Date: 20220817
  Receipt Date: 20220817
  Transmission Date: 20221027
  Serious: Yes (Life-Threatening, Hospitalization, Other)
  Sender: FDA-Public Use
  Company Number: None

PATIENT
  Age: 43 Year
  Sex: Male
  Weight: 80 kg

DRUGS (15)
  1. LIDOCAINE [Suspect]
     Active Substance: LIDOCAINE
     Indication: Nerve block
     Dosage: UNK
     Route: 065
  2. CHLORPHENIRAMINE MALEATE [Suspect]
     Active Substance: CHLORPHENIRAMINE MALEATE
     Indication: Product used for unknown indication
     Dosage: UNK
     Route: 042
  3. FENTANYL [Suspect]
     Active Substance: FENTANYL
     Indication: General anaesthesia
     Dosage: UNK
     Route: 065
  4. HYALASE [Suspect]
     Active Substance: HYALURONIDASE
     Indication: Nerve block
     Dosage: 8 MILLILITER
     Route: 065
     Dates: start: 20220726
  5. PROPOFOL [Suspect]
     Active Substance: PROPOFOL
     Indication: Nerve block
     Dosage: UNK
     Route: 065
  6. PROPOFOL [Suspect]
     Active Substance: PROPOFOL
     Indication: Gonioscopy
  7. PROPOFOL [Suspect]
     Active Substance: PROPOFOL
     Indication: Sedation
  8. PROPOFOL [Suspect]
     Active Substance: PROPOFOL
     Indication: Trabeculectomy
  9. POVIDONE-IODINE [Suspect]
     Active Substance: POVIDONE-IODINE
     Indication: Medical procedure
     Dosage: UNK
     Route: 065
     Dates: start: 20220726
  10. EPINEPHRINE [Suspect]
     Active Substance: EPINEPHRINE
     Indication: Tachycardia
     Dosage: UNK
     Route: 065
  11. EPINEPHRINE [Suspect]
     Active Substance: EPINEPHRINE
     Indication: Hypotension
     Dosage: UNK (FIRST DOSE)
     Route: 030
  12. EPINEPHRINE [Suspect]
     Active Substance: EPINEPHRINE
     Indication: Erythema
     Dosage: UNK,(SECOND DOSE)
     Route: 030
  13. HYDROCORTISONE [Suspect]
     Active Substance: HYDROCORTISONE
     Indication: Eye swelling
     Dosage: UNK
     Route: 042
  14. HYDROCORTISONE [Suspect]
     Active Substance: HYDROCORTISONE
     Indication: Erythema of eyelid
     Dosage: UNK
     Route: 065
  15. METARAMINOL [Suspect]
     Active Substance: METARAMINOL
     Indication: Tachycardia
     Dosage: UNK
     Route: 065

REACTIONS (19)
  - Erythema of eyelid [Recovered/Resolved]
  - Condition aggravated [Recovered/Resolved]
  - Swelling of eyelid [Recovered/Resolved]
  - Asthenopia [Recovered/Resolved]
  - Eye swelling [Recovered/Resolved]
  - Condition aggravated [Recovered/Resolved]
  - Tachycardia [Recovered/Resolved]
  - Erythema [Recovered/Resolved]
  - Condition aggravated [Recovered/Resolved]
  - Lip swelling [Recovered/Resolved]
  - Swollen tongue [Recovered/Resolved]
  - Rash [Recovered/Resolved]
  - Hypoaesthesia oral [Recovered/Resolved]
  - Paraesthesia oral [Recovered/Resolved]
  - Blood lactic acid increased [Recovered/Resolved]
  - Procedural pain [Recovered/Resolved]
  - Anaphylactic reaction [Recovered/Resolved]
  - Hypotension [Recovered/Resolved]
  - Off label use [Unknown]

NARRATIVE: CASE EVENT DATE: 20220726
